FAERS Safety Report 14647409 (Version 4)
Quarter: 2018Q4

REPORT INFORMATION
  Report Type: Spontaneous
  Country: US (occurrence: US)
  Receive Date: 20180316
  Receipt Date: 20181001
  Transmission Date: 20190204
  Serious: Yes (Hospitalization, Disabling)
  Sender: FDA-Public Use
  Company Number: US-PFIZER INC-2018107966

PATIENT
  Age: 50 Year
  Sex: Female
  Weight: 68.4 kg

DRUGS (5)
  1. LYRICA [Suspect]
     Active Substance: PREGABALIN
     Indication: MYALGIA
  2. LYRICA [Suspect]
     Active Substance: PREGABALIN
     Indication: NERVE INJURY
     Dosage: 150 MG, 3X/DAY
     Route: 048
  3. LYRICA [Suspect]
     Active Substance: PREGABALIN
     Indication: GUILLAIN-BARRE SYNDROME
     Dosage: 150 MG, 3X/DAY
     Route: 048
     Dates: start: 201606
  4. LYRICA [Suspect]
     Active Substance: PREGABALIN
     Indication: MUSCLE INJURY
  5. LYRICA [Suspect]
     Active Substance: PREGABALIN
     Indication: NEURALGIA

REACTIONS (6)
  - Withdrawal syndrome [Recovered/Resolved]
  - Fall [Unknown]
  - Headache [Unknown]
  - Pain [Recovered/Resolved]
  - Skin abrasion [Unknown]
  - Arthralgia [Unknown]

NARRATIVE: CASE EVENT DATE: 20180221
